FAERS Safety Report 21467272 (Version 1)
Quarter: 2022Q4

REPORT INFORMATION
  Report Type: Spontaneous
  Country: US (occurrence: US)
  Receive Date: 20221017
  Receipt Date: 20221017
  Transmission Date: 20230113
  Serious: Yes (Other)
  Sender: FDA-Public Use
  Company Number: US-TEVA-2022-US-2816095

PATIENT
  Sex: Female

DRUGS (1)
  1. CEPHALEXIN [Suspect]
     Active Substance: CEPHALEXIN
     Indication: Product used for unknown indication
     Dosage: 500 MG
     Route: 065
     Dates: start: 20221006

REACTIONS (3)
  - Diarrhoea haemorrhagic [Unknown]
  - Blood urine present [Recovered/Resolved]
  - Thrombosis [Recovered/Resolved]
